FAERS Safety Report 16069705 (Version 2)
Quarter: 2019Q1

REPORT INFORMATION
  Report Type: Spontaneous
  Country: IE (occurrence: IE)
  Receive Date: 20190314
  Receipt Date: 20190321
  Transmission Date: 20190418
  Serious: Yes (Hospitalization, Other)
  Sender: FDA-Public Use
  Company Number: IE-TEVA-2019-IE-1023542

PATIENT
  Age: 52 Year
  Sex: Female
  Weight: 69 kg

DRUGS (8)
  1. MENOPACE [Concomitant]
  2. GALFER [Concomitant]
     Active Substance: IRON
     Indication: ANAEMIA
     Dosage: 305 MG
  3. CO-AMOXICLAV (G) [Suspect]
     Active Substance: AMOXICILLIN\CLAVULANIC ACID
     Indication: TOOTH INFECTION
     Dosage: 625MG EVERY 8 HOURS
     Route: 048
     Dates: start: 20190204, end: 20190208
  4. CRESTOR [Concomitant]
     Active Substance: ROSUVASTATIN CALCIUM
     Indication: HYPERCHOLESTEROLAEMIA
     Dosage: 10 MG
  5. VENTOLIN [Concomitant]
     Active Substance: ALBUTEROL SULFATE
     Dosage: 100 MICROGRAM 2 PUFFS UP TO 4 TIMES DAILY IF NEEDED
     Route: 055
  6. VALSARTAN (GENERIC) [Concomitant]
     Indication: HYPERTENSION
  7. ASPIRIN (GENERIC) [Concomitant]
     Active Substance: ASPIRIN
     Dosage: 75 MG
  8. ELTROXIN [Concomitant]
     Active Substance: LEVOTHYROXINE
     Indication: HYPOTHYROIDISM
     Dosage: 50 MCG

REACTIONS (2)
  - Drug-induced liver injury [Recovered/Resolved]
  - Liver function test abnormal [Recovered/Resolved]

NARRATIVE: CASE EVENT DATE: 20190213
